FAERS Safety Report 13324499 (Version 1)
Quarter: 2017Q1

REPORT INFORMATION
  Report Type: Report from Study
  Country: US (occurrence: US)
  Receive Date: 20170310
  Receipt Date: 20170310
  Transmission Date: 20170428
  Serious: Yes (Hospitalization)
  Sender: FDA-Public Use
  Company Number: PHHY2014US139919

PATIENT
  Age: 39 Year
  Sex: Female
  Weight: 120 kg

DRUGS (4)
  1. DITROPAN [Concomitant]
     Active Substance: OXYBUTYNIN CHLORIDE
     Indication: HYPERTONIC BLADDER
     Dosage: 10 MG, UNK
     Route: 065
     Dates: start: 20140924
  2. GILENYA [Suspect]
     Active Substance: FINGOLIMOD HYDROCHLORIDE
     Dosage: 0.5 MG, QD
     Route: 048
     Dates: start: 20150120
  3. GILENYA [Suspect]
     Active Substance: FINGOLIMOD HYDROCHLORIDE
     Indication: MULTIPLE SCLEROSIS
     Dosage: 0.5 MG, QD
     Route: 048
     Dates: start: 20131126
  4. DITROPAN [Concomitant]
     Active Substance: OXYBUTYNIN CHLORIDE
     Indication: URINARY INCONTINENCE

REACTIONS (14)
  - Urinary tract infection [Recovered/Resolved]
  - Blood albumin decreased [Unknown]
  - Paraesthesia [Unknown]
  - Platelet count increased [Unknown]
  - Haemoglobin decreased [Unknown]
  - Hypertension [Unknown]
  - Urinary incontinence [Unknown]
  - Paralysis [Unknown]
  - Protein total increased [Unknown]
  - Hemiparesis [Unknown]
  - Anaemia [Unknown]
  - Haematocrit decreased [Unknown]
  - Multiple sclerosis relapse [Unknown]
  - Blood alkaline phosphatase increased [Unknown]

NARRATIVE: CASE EVENT DATE: 20140402
